FAERS Safety Report 5508741-X (Version None)
Quarter: 2007Q4

REPORT INFORMATION
  Report Type: 
  Country: None (occurrence: None)
  Receive Date: 20071105
  Receipt Date: 20071022
  Transmission Date: 20080405
  Serious: Yes (Other)
  Sender: FDA-Public Use
  Company Number: 2007BI022491

PATIENT
  Age: 48 Year
  Sex: Female

DRUGS (2)
  1. NATALIZUMAB [Suspect]
     Indication: MULTIPLE SCLEROSIS
     Dosage: IV; 300 MG;QM;IV
     Route: 042
     Dates: start: 20070626
  2. AVONEX [Concomitant]

REACTIONS (4)
  - DELUSION [None]
  - PARANOIA [None]
  - POOR QUALITY SLEEP [None]
  - TREATMENT NONCOMPLIANCE [None]
